FAERS Safety Report 17360785 (Version 2)
Quarter: 2020Q1

REPORT INFORMATION
  Report Type: Spontaneous
  Country: PT (occurrence: PT)
  Receive Date: 20200203
  Receipt Date: 20200208
  Transmission Date: 20200409
  Serious: Yes (Hospitalization, Other)
  Sender: FDA-Public Use
  Company Number: NVSC2020PT025344

PATIENT
  Age: 74 Year
  Sex: Male

DRUGS (3)
  1. WARFARIN [Suspect]
     Active Substance: WARFARIN
     Dosage: UNK
     Route: 065
  2. AMOXICILLIN,CLAVULANIC ACID [Suspect]
     Active Substance: AMOXICILLIN\CLAVULANIC ACID
     Indication: PRODUCT USED FOR UNKNOWN INDICATION
     Dosage: UNK
     Route: 065
  3. WARFARIN [Suspect]
     Active Substance: WARFARIN
     Indication: PRODUCT USED FOR UNKNOWN INDICATION
     Dosage: 30 MG, QW
     Route: 065

REACTIONS (14)
  - Abdominal pain upper [Recovered/Resolved]
  - International normalised ratio increased [Recovered/Resolved]
  - Hypochromic anaemia [Unknown]
  - Glomerular filtration rate decreased [Recovered/Resolved]
  - Nausea [Recovered/Resolved]
  - Asthenia [Recovered/Resolved]
  - Renal impairment [Recovered/Resolved]
  - Iron deficiency anaemia [Unknown]
  - Abdominal pain [Unknown]
  - Cough [Unknown]
  - Abdominal wall haematoma [Unknown]
  - Drug interaction [Unknown]
  - Inflammatory marker increased [Unknown]
  - Intra-abdominal haematoma [Recovered/Resolved]
